FAERS Safety Report 16923484 (Version 3)
Quarter: 2020Q1

REPORT INFORMATION
  Report Type: Not Available
  Country: US (occurrence: US)
  Receive Date: 20191016
  Receipt Date: 20200117
  Transmission Date: 20200409
  Serious: No
  Sender: FDA-Public Use
  Company Number: US-NEUROCRINE BIOSCIENCES INC.-2019NBI02943

PATIENT
  Age: 62 Year
  Sex: Female

DRUGS (26)
  1. HYDROXYZINE [Concomitant]
     Active Substance: HYDROXYZINE HYDROCHLORIDE
  2. SYMBICORT [Concomitant]
     Active Substance: BUDESONIDE\FORMOTEROL FUMARATE DIHYDRATE
     Dosage: 160-4.5MCG
  3. ASPIRIN. [Concomitant]
     Active Substance: ASPIRIN
  4. NAPROXEN. [Concomitant]
     Active Substance: NAPROXEN
  5. OLANZAPINE. [Concomitant]
     Active Substance: OLANZAPINE
  6. ATORVASTATIN [Concomitant]
     Active Substance: ATORVASTATIN
  7. INGREZZA [Suspect]
     Active Substance: VALBENAZINE
     Indication: TARDIVE DYSKINESIA
     Route: 048
     Dates: start: 20190326, end: 20190402
  8. ALBUTEROL. [Concomitant]
     Active Substance: ALBUTEROL
  9. FETZIMA [Concomitant]
     Active Substance: LEVOMILNACIPRAN HYDROCHLORIDE
  10. OMEPRAZOLE. [Concomitant]
     Active Substance: OMEPRAZOLE
  11. INGREZZA [Suspect]
     Active Substance: VALBENAZINE
     Route: 048
     Dates: start: 20190403, end: 2019
  12. INGREZZA [Suspect]
     Active Substance: VALBENAZINE
     Route: 048
     Dates: start: 20190812
  13. ACCUNEB [Concomitant]
     Active Substance: ALBUTEROL SULFATE
     Dosage: 2.5MG/3ML
  14. CYCLOBENZAPRINE. [Concomitant]
     Active Substance: CYCLOBENZAPRINE
  15. LISINOPRIL. [Concomitant]
     Active Substance: LISINOPRIL
  16. METFORMIN [Concomitant]
     Active Substance: METFORMIN HYDROCHLORIDE
  17. OLANZAPINE. [Concomitant]
     Active Substance: OLANZAPINE
     Dosage: 1 TABLET AT BEDTIME (QHS)
     Route: 048
  18. SPIRIVA RESPIMAT [Concomitant]
     Active Substance: TIOTROPIUM BROMIDE
  19. CARVEDILOL. [Concomitant]
     Active Substance: CARVEDILOL
  20. FETZIMA [Concomitant]
     Active Substance: LEVOMILNACIPRAN HYDROCHLORIDE
     Route: 048
  21. IBUPROFEN. [Concomitant]
     Active Substance: IBUPROFEN
  22. KLONOPIN [Concomitant]
     Active Substance: CLONAZEPAM
     Route: 048
  23. DULAGLUTIDE. [Concomitant]
     Active Substance: DULAGLUTIDE
     Dosage: 0.75MG/0.5ML
  24. FLUTICASONE. [Concomitant]
     Active Substance: FLUTICASONE
  25. BISACODYL. [Concomitant]
     Active Substance: BISACODYL
  26. JARDIANCE [Concomitant]
     Active Substance: EMPAGLIFLOZIN

REACTIONS (4)
  - Dizziness [Recovered/Resolved]
  - Tardive dyskinesia [Not Recovered/Not Resolved]
  - Feeling abnormal [Unknown]
  - Vision blurred [Recovered/Resolved]

NARRATIVE: CASE EVENT DATE: 2019
